FAERS Safety Report 18374846 (Version 2)
Quarter: 2020Q4

REPORT INFORMATION
  Report Type: Spontaneous
  Country: DK (occurrence: DK)
  Receive Date: 20201013
  Receipt Date: 20201109
  Transmission Date: 20210114
  Serious: Yes (Other)
  Sender: FDA-Public Use
  Company Number: DK-TEVA-2020-DK-1836932

PATIENT
  Age: 67 Year
  Sex: Female

DRUGS (1)
  1. CLOPIDOGREL ^TEVA^ [Suspect]
     Active Substance: CLOPIDOGREL BISULFATE
     Indication: THROMBOSIS PROPHYLAXIS
     Route: 048
     Dates: start: 20200219

REACTIONS (17)
  - Flatulence [Unknown]
  - Dyspnoea [Unknown]
  - Pruritus [Unknown]
  - Blister [Unknown]
  - Paraesthesia [Unknown]
  - Intestinal haemorrhage [Unknown]
  - Pyrexia [Unknown]
  - Haemorrhage [Unknown]
  - Myalgia [Unknown]
  - Dizziness [Unknown]
  - Rash [Unknown]
  - Arthralgia [Unknown]
  - Epistaxis [Unknown]
  - Hypersensitivity [Unknown]
  - Subcutaneous haematoma [Unknown]
  - Dermatitis allergic [Unknown]
  - Cough [Unknown]
